FAERS Safety Report 5277630-0 (Version None)
Quarter: 2007Q1

REPORT INFORMATION
  Report Type: 
  Country: None (occurrence: None)
  Receive Date: 20061213
  Receipt Date: 20050328
  Transmission Date: 20070707
  Serious: No
  Sender: FDA-Public Use
  Company Number: 2005UW03748

PATIENT
  Age: 24 Year
  Sex: Female

DRUGS (10)
  1. SEROQUEL [Suspect]
     Indication: ANXIETY
     Dosage: 100 MG QD PO
     Route: 048
     Dates: start: 20050304, end: 20050304
  2. SEROQUEL [Suspect]
     Indication: BIPOLAR II DISORDER
     Dosage: 100 MG QD PO
     Route: 048
     Dates: start: 20050304, end: 20050304
  3. RISPERDAL [Concomitant]
  4. LEXAPRO [Concomitant]
  5. TRAZODONE HCL [Concomitant]
  6. SERAX [Concomitant]
  7. ROBAXIN [Concomitant]
  8. CLONIDINE [Concomitant]
  9. BENTYL [Concomitant]
  10. MOTRIN [Concomitant]

REACTIONS (1)
  - OCULOGYRATION [None]
